FAERS Safety Report 9685634 (Version 1)
Quarter: 2013Q4

REPORT INFORMATION
  Report Type: Spontaneous
  Country: US (occurrence: US)
  Receive Date: 20131113
  Receipt Date: 20131113
  Transmission Date: 20140711
  Serious: No
  Sender: FDA-Public Use
  Company Number: US-GLAXOSMITHKLINE-A1023714A

PATIENT
  Age: 81 Year
  Sex: Female

DRUGS (2)
  1. CARVEDILOL [Suspect]
     Indication: HYPERTENSION
     Route: 065
  2. COREG CR [Suspect]
     Indication: HYPERTENSION
     Dosage: 20MG PER DAY
     Route: 048

REACTIONS (3)
  - Blood pressure increased [Unknown]
  - Therapeutic response decreased [Unknown]
  - Product quality issue [Unknown]
